FAERS Safety Report 10463332 (Version 2)
Quarter: 2014Q4

REPORT INFORMATION
  Report Type: Spontaneous
  Country: RU (occurrence: RU)
  Receive Date: 20140919
  Receipt Date: 20141003
  Transmission Date: 20150528
  Serious: Yes (Other)
  Sender: FDA-Public Use
  Company Number: RU-BRISTOL-MYERS SQUIBB COMPANY-21404918

PATIENT
  Age: 76 Year
  Sex: Female
  Weight: 47 kg

DRUGS (9)
  1. MOVALIS [Concomitant]
     Active Substance: MELOXICAM
  2. CARDIKET [Concomitant]
     Active Substance: ISOSORBIDE DINITRATE
     Indication: ANGINA PECTORIS
  3. VEROSPIRON [Concomitant]
     Active Substance: SPIRONOLACTONE
  4. ATORIS [Concomitant]
     Active Substance: ATORVASTATIN CALCIUM
     Indication: MYOCARDIAL ISCHAEMIA
  5. ELIQUIS [Suspect]
     Active Substance: APIXABAN
     Indication: CEREBROVASCULAR ACCIDENT PROPHYLAXIS
     Route: 048
     Dates: start: 201404, end: 201408
  6. L-THYROXINE [Concomitant]
     Active Substance: LEVOTHYROXINE
     Indication: HYPOTHYROIDISM
  7. HEPARIN SODIUM. [Concomitant]
     Active Substance: HEPARIN SODIUM
  8. KLEXANE [Concomitant]
     Active Substance: ENOXAPARIN
  9. HYPOTHIAZID [Concomitant]

REACTIONS (3)
  - Vascular pain [Recovered/Resolved]
  - Injection site haematoma [Recovered/Resolved]
  - Vasodilatation [Recovered/Resolved]

NARRATIVE: CASE EVENT DATE: 201407
